FAERS Safety Report 7479268-3 (Version None)
Quarter: 2011Q2

REPORT INFORMATION
  Report Type: 
  Country: None (occurrence: None)
  Receive Date: 20110513
  Receipt Date: 20110429
  Transmission Date: 20111010
  Serious: Yes (Hospitalization, Other)
  Sender: FDA-Public Use
  Company Number: EE-ASTRAZENECA-2011SE25927

PATIENT
  Age: 52 Year
  Sex: Male
  Weight: 70 kg

DRUGS (5)
  1. RAMIPRIL [Interacting]
     Route: 048
     Dates: start: 20090101
  2. METOPROLOL SUCCINATE [Suspect]
     Route: 048
     Dates: start: 20090101
  3. PLAVIX [Interacting]
     Route: 048
     Dates: start: 20090101
  4. OMEPRAZOLE [Interacting]
     Route: 048
     Dates: start: 20110301
  5. SIMVASTATIN [Interacting]
     Route: 048
     Dates: start: 20090101

REACTIONS (3)
  - ILEUS [None]
  - CONSTIPATION [None]
  - DRUG INTERACTION [None]
